FAERS Safety Report 8332595-X (Version None)
Quarter: 2012Q2

REPORT INFORMATION
  Report Type: 
  Country: None (occurrence: None)
  Receive Date: 20120503
  Receipt Date: 20120425
  Transmission Date: 20120825
  Serious: Yes (Hospitalization)
  Sender: FDA-Public Use
  Company Number: US-BAYER-2011-036933

PATIENT
  Age: 41 Year
  Sex: Female

DRUGS (6)
  1. BOTOX [Concomitant]
     Indication: TORTICOLLIS
  2. YAZ [Suspect]
     Indication: UNDERWEIGHT
  3. YASMIN [Suspect]
  4. ANTISPASMODIC [Concomitant]
     Indication: TORTICOLLIS
  5. VALIUM [Concomitant]
  6. AMRIX [Concomitant]

REACTIONS (3)
  - PULMONARY EMBOLISM [None]
  - PAIN [None]
  - INJURY [None]
